FAERS Safety Report 5658789-X (Version None)
Quarter: 2008Q1

REPORT INFORMATION
  Report Type: 
  Country: None (occurrence: None)
  Receive Date: 20080310
  Receipt Date: 20070730
  Transmission Date: 20080703
  Serious: No
  Sender: FDA-Public Use
  Company Number: US-BAYER-200711148BCC

PATIENT
  Sex: Female
  Weight: 61 kg

DRUGS (6)
  1. ALEVE [Suspect]
     Indication: NECK PAIN
     Dosage: TOTAL DAILY DOSE: 440 MG  UNIT DOSE: 220 MG
     Route: 048
  2. SYNTHROID [Concomitant]
  3. BENICAR [Concomitant]
  4. PRAVACHOL [Concomitant]
  5. FISH OIL [Concomitant]
  6. CENTRUM [Concomitant]

REACTIONS (1)
  - FEELING JITTERY [None]
